FAERS Safety Report 16650469 (Version 2)
Quarter: 2019Q3

REPORT INFORMATION
  Report Type: Spontaneous
  Country: US (occurrence: US)
  Receive Date: 20190731
  Receipt Date: 20190813
  Transmission Date: 20191004
  Serious: No
  Sender: FDA-Public Use
  Company Number: US-APOTEX-2019AP018022

PATIENT
  Age: 64 Year
  Sex: Female

DRUGS (11)
  1. MIRENA [Concomitant]
     Active Substance: LEVONORGESTREL
     Indication: HORMONE LEVEL ABNORMAL
     Dosage: UNK
     Route: 065
  2. KETOROLAC TROMETHAMINE. [Suspect]
     Active Substance: KETOROLAC TROMETHAMINE
     Indication: DRY EYE
     Dosage: 1 GTT, QID 1 DROP FROM THE RIGHT EYE 4 TIMES
     Route: 047
     Dates: start: 20190701, end: 20190702
  3. PREDNISOLONE. [Concomitant]
     Active Substance: PREDNISOLONE
     Indication: DRY EYE
     Dosage: 1 GTT, QID
     Route: 065
  4. NULEV [Concomitant]
     Active Substance: HYOSCYAMINE SULFATE
     Indication: GASTROOESOPHAGEAL REFLUX DISEASE
  5. TRONOLANE [Concomitant]
     Active Substance: PRAMOXINE HYDROCHLORIDE\ZINC OXIDE
     Indication: ANORECTAL DISORDER
     Dosage: UNK, BID, SINCE 3 YEARS
     Route: 054
  6. KETOROLAC TROMETHAMINE. [Suspect]
     Active Substance: KETOROLAC TROMETHAMINE
     Indication: EPISCLERITIS
  7. SYSTANE ULTRA [Concomitant]
     Active Substance: POLYETHYLENE GLYCOL 400\PROPYLENE GLYCOL
     Indication: DRY EYE
     Route: 065
  8. NULEV [Concomitant]
     Active Substance: HYOSCYAMINE SULFATE
     Indication: GASTROOESOPHAGEAL REFLUX DISEASE
     Dosage: 0.125 MG, QD SINCE 3 YEARS
     Route: 065
  9. OMEPRAZOLE. [Concomitant]
     Active Substance: OMEPRAZOLE
     Indication: GASTROOESOPHAGEAL REFLUX DISEASE
     Dosage: 40 MG, BID SINCE 3 YEARS
     Route: 065
  10. PREDNISOLONE. [Concomitant]
     Active Substance: PREDNISOLONE
     Indication: EPISCLERITIS
  11. OMEPRAZOLE. [Concomitant]
     Active Substance: OMEPRAZOLE
     Indication: GASTROOESOPHAGEAL REFLUX DISEASE

REACTIONS (7)
  - Abdominal discomfort [Recovered/Resolved]
  - Skin disorder [Recovered/Resolved]
  - Pruritus [Recovered/Resolved]
  - Dysgeusia [Recovered/Resolved]
  - Abdominal pain upper [Recovered/Resolved]
  - Rash [Recovered/Resolved]
  - Pigmentation disorder [Recovered/Resolved]

NARRATIVE: CASE EVENT DATE: 20190701
